FAERS Safety Report 20192827 (Version 1)
Quarter: 2021Q4

REPORT INFORMATION
  Report Type: Spontaneous
  Country: US (occurrence: US)
  Receive Date: 20211216
  Receipt Date: 20211216
  Transmission Date: 20220303
  Serious: Yes (Other)
  Sender: FDA-Public Use
  Company Number: US-EXELIXIS-CABO-21047095

PATIENT
  Sex: Male

DRUGS (3)
  1. CABOMETYX [Suspect]
     Active Substance: CABOZANTINIB S-MALATE
     Indication: Prostate cancer metastatic
     Dosage: UNK
     Dates: start: 20210817
  2. ATEZOLIZUMAB [Suspect]
     Active Substance: ATEZOLIZUMAB
     Indication: Prostate cancer metastatic
     Dosage: UNK
     Dates: start: 20210817
  3. TAXOTERE [Concomitant]
     Active Substance: DOCETAXEL
     Indication: Prostate cancer metastatic

REACTIONS (5)
  - Spinal compression fracture [Unknown]
  - Vertebral lesion [Unknown]
  - Bone lesion [Unknown]
  - Lymphadenopathy [Unknown]
  - Off label use [Unknown]
